FAERS Safety Report 10496663 (Version 1)
Quarter: 2014Q4

REPORT INFORMATION
  Report Type: Spontaneous
  Country: US (occurrence: US)
  Receive Date: 20141006
  Receipt Date: 20141006
  Transmission Date: 20150528
  Serious: No
  Sender: FDA-Public Use
  Company Number: US-ASTRAZENECA-2014SE72479

PATIENT
  Age: 54 Year
  Sex: Male
  Weight: 70.3 kg

DRUGS (1)
  1. CRESTOR [Suspect]
     Active Substance: ROSUVASTATIN CALCIUM
     Indication: BLOOD CHOLESTEROL INCREASED
     Route: 048
     Dates: start: 2004

REACTIONS (9)
  - Abdominal distension [Recovering/Resolving]
  - Small intestinal bacterial overgrowth [Unknown]
  - Gastrointestinal motility disorder [Recovering/Resolving]
  - Constipation [Recovering/Resolving]
  - Discomfort [Recovering/Resolving]
  - Flatulence [Recovering/Resolving]
  - Abdominal tenderness [Recovered/Resolved]
  - Defaecation urgency [Recovering/Resolving]
  - Cow^s milk intolerance [Unknown]

NARRATIVE: CASE EVENT DATE: 2009
